FAERS Safety Report 21390940 (Version 1)
Quarter: 2022Q3

REPORT INFORMATION
  Report Type: Spontaneous
  Country: SE (occurrence: SE)
  Receive Date: 20220929
  Receipt Date: 20220929
  Transmission Date: 20221027
  Serious: Yes (Life-Threatening, Disabling, Other)
  Sender: FDA-Public Use
  Company Number: SE-009507513-1604SWE005737

PATIENT
  Age: 33 Year
  Sex: Female

DRUGS (5)
  1. MIRTAZAPINE [Suspect]
     Active Substance: MIRTAZAPINE
     Dosage: 4 TABLETS IN THE EVENING
     Route: 048
     Dates: start: 201512, end: 20160123
  2. SERTRALINE [Suspect]
     Active Substance: SERTRALINE HYDROCHLORIDE
     Dosage: 4 TABLETS ONCE PER DAY
     Route: 048
     Dates: start: 201512, end: 20160123
  3. PROMETHAZINE HYDROCHLORIDE [Suspect]
     Active Substance: PROMETHAZINE HYDROCHLORIDE
     Dosage: 1-2 TABLETS WHEN REQUIRED, MAXIMUM 6 TABLETS PER 24 HOURS.
     Route: 048
     Dates: start: 201512, end: 20160123
  4. PROPIOMAZINE [Concomitant]
     Active Substance: PROPIOMAZINE
     Dosage: UNK
  5. ZOLPIDEM TARTRATE [Concomitant]
     Active Substance: ZOLPIDEM TARTRATE
     Dosage: UNK

REACTIONS (6)
  - Cardiac arrest [Not Recovered/Not Resolved]
  - Ventricular fibrillation [Recovered/Resolved with Sequelae]
  - Electrocardiogram QT prolonged [Not Recovered/Not Resolved]
  - Syncope [Not Recovered/Not Resolved]
  - Torsade de pointes [Recovered/Resolved with Sequelae]
  - Ventricular tachycardia [Recovered/Resolved with Sequelae]

NARRATIVE: CASE EVENT DATE: 20160122
